FAERS Safety Report 7779902-4 (Version None)
Quarter: 2011Q3

REPORT INFORMATION
  Report Type: 
  Country: None (occurrence: None)
  Receive Date: 20110927
  Receipt Date: 20110915
  Transmission Date: 20111222
  Serious: Yes (Hospitalization)
  Sender: FDA-Public Use
  Company Number: US-JNJFOC-20110907519

PATIENT
  Sex: Female
  Weight: 103 kg

DRUGS (19)
  1. GOLIMUMAB [Suspect]
     Indication: RHEUMATOID ARTHRITIS
     Route: 058
     Dates: start: 20110822
  2. MAXALT [Concomitant]
     Indication: MIGRAINE
     Route: 048
     Dates: start: 20060101
  3. ESTRADIOL [Concomitant]
     Indication: HYSTERECTOMY
     Route: 048
     Dates: start: 19981101
  4. FOLIC ACID [Concomitant]
     Indication: NUTRITIONAL SUPPORT
     Route: 048
     Dates: start: 20110215
  5. METHOTREXATE [Concomitant]
     Indication: RHEUMATOID ARTHRITIS
     Route: 048
     Dates: start: 20110215
  6. PREDNISONE [Concomitant]
     Indication: RHEUMATOID ARTHRITIS
     Route: 048
     Dates: start: 20110419
  7. BACTROBAN [Concomitant]
     Indication: NASAL ULCER
     Route: 061
     Dates: start: 20110731
  8. HUMIRA [Concomitant]
     Indication: RHEUMATOID ARTHRITIS
     Route: 058
     Dates: start: 20110615, end: 20110708
  9. MORPHINE SULFATE [Concomitant]
     Indication: RHEUMATOID ARTHRITIS
     Route: 048
     Dates: start: 19990101
  10. HYDROXYZINE [Concomitant]
     Indication: PRURITUS
     Route: 048
     Dates: start: 20101201
  11. FLUOXETINE [Concomitant]
     Indication: DEPRESSION
     Route: 048
     Dates: start: 20090801
  12. FUROSEMIDE [Concomitant]
     Indication: OEDEMA
     Route: 048
     Dates: start: 20110526
  13. HUMIRA [Concomitant]
     Route: 058
     Dates: start: 20100801, end: 20110615
  14. POTASSIUM CHLORIDE [Concomitant]
     Indication: OEDEMA
     Route: 048
     Dates: start: 20110526
  15. FLONASE [Concomitant]
     Indication: SINUS CONGESTION
     Route: 045
     Dates: start: 20100301
  16. GOLIMUMAB [Suspect]
     Route: 058
     Dates: start: 20110725
  17. INSULIN [Concomitant]
     Indication: TYPE 2 DIABETES MELLITUS
     Route: 058
     Dates: start: 20110301
  18. ATENOLOL [Concomitant]
     Indication: HYPERTENSION
     Route: 048
     Dates: start: 20050101
  19. OMEPRAZOLE [Concomitant]
     Indication: GASTROOESOPHAGEAL REFLUX DISEASE
     Route: 048
     Dates: start: 19980101

REACTIONS (1)
  - DIVERTICULITIS [None]
